FAERS Safety Report 20069519 (Version 1)
Quarter: 2021Q4

REPORT INFORMATION
  Report Type: Report from Study
  Country: US (occurrence: US)
  Receive Date: 20211115
  Receipt Date: 20211115
  Transmission Date: 20220303
  Serious: Yes (Death, Life-Threatening, Other)
  Sender: FDA-Public Use
  Company Number: US-MYLANLABS-2021M1083227

PATIENT
  Age: 77 Year
  Sex: Male
  Weight: 83 kg

DRUGS (4)
  1. EPINEPHRINE [Suspect]
     Active Substance: EPINEPHRINE
     Indication: Cardiac arrest
     Dosage: UNK
     Dates: start: 20211011, end: 20211011
  2. NYSTATIN [Concomitant]
     Active Substance: NYSTATIN
     Indication: Product used for unknown indication
     Dosage: UNK
     Route: 065
  3. CALCIUM CHLORIDE [Concomitant]
     Active Substance: CALCIUM CHLORIDE
     Indication: Cardiac arrest
     Dosage: UNK
     Dates: start: 20211011, end: 20211011
  4. DEXTROSE [Concomitant]
     Active Substance: DEXTROSE
     Indication: Cardiac arrest
     Dosage: UNK
     Dates: start: 20211011, end: 20211011

REACTIONS (1)
  - Drug ineffective for unapproved indication [Fatal]

NARRATIVE: CASE EVENT DATE: 20211011
